FAERS Safety Report 6700680-1 (Version None)
Quarter: 2010Q2

REPORT INFORMATION
  Report Type: 
  Country: None (occurrence: None)
  Receive Date: 20100428
  Receipt Date: 20100423
  Transmission Date: 20101027
  Serious: Yes (Life-Threatening, Hospitalization)
  Sender: FDA-Public Use
  Company Number: PHHY2010PT25427

PATIENT
  Sex: Female

DRUGS (1)
  1. EXTAVIA [Suspect]
     Indication: MULTIPLE SCLEROSIS
     Dosage: UNK
     Dates: start: 20091101

REACTIONS (9)
  - ABDOMINAL WALL INFECTION [None]
  - ANURIA [None]
  - CELLULITIS [None]
  - MECHANICAL VENTILATION [None]
  - MULTI-ORGAN FAILURE [None]
  - NAUSEA [None]
  - SEPTIC SHOCK [None]
  - URINARY TRACT INFECTION [None]
  - VOMITING [None]
